FAERS Safety Report 7292322-4 (Version None)
Quarter: 2011Q1

REPORT INFORMATION
  Report Type: 
  Country: None (occurrence: None)
  Receive Date: 20110215
  Receipt Date: 20110201
  Transmission Date: 20110831
  Serious: Yes (Hospitalization, Other)
  Sender: FDA-Public Use
  Company Number: US-CELGENEUS-087-21880-11020011

PATIENT
  Sex: Male
  Weight: 62.2 kg

DRUGS (18)
  1. REVLIMID [Suspect]
     Indication: MULTIPLE MYELOMA
     Route: 048
     Dates: start: 20101209, end: 20101229
  2. LENADEX [Suspect]
     Route: 048
     Dates: start: 20101217, end: 20101217
  3. SELTOUCH [Concomitant]
     Indication: MULTIPLE MYELOMA
     Route: 062
     Dates: start: 20101228
  4. LENADEX [Suspect]
     Indication: MULTIPLE MYELOMA
     Route: 048
     Dates: start: 20101209, end: 20101212
  5. SHAKUYAKU-KANZO-TO [Concomitant]
     Indication: PROPHYLAXIS
     Route: 048
     Dates: start: 20101210, end: 20101217
  6. REBAMIPIDE [Concomitant]
     Indication: PROPHYLAXIS
     Route: 048
     Dates: start: 20101209
  7. FLUNASE [Concomitant]
     Route: 045
     Dates: start: 20101209
  8. LANSOPRAZOLE [Concomitant]
     Indication: PROPHYLAXIS
     Route: 048
     Dates: start: 20101209
  9. PLETAL [Concomitant]
     Route: 048
     Dates: start: 20101209
  10. LASIX [Concomitant]
     Route: 048
     Dates: start: 20101209
  11. DAIPHEN [Concomitant]
     Route: 048
     Dates: start: 20101220, end: 20101226
  12. SLOW-K [Concomitant]
     Indication: PROPHYLAXIS
     Route: 048
     Dates: start: 20101209
  13. HIRUDOID [Concomitant]
     Route: 062
     Dates: start: 20101211
  14. FLUITRAN [Concomitant]
     Route: 048
     Dates: start: 20101209
  15. URINORM [Concomitant]
     Route: 048
     Dates: start: 20101216, end: 20110103
  16. ALLOZYM [Concomitant]
     Route: 048
     Dates: start: 20101209, end: 20101215
  17. PRIMPERAN TAB [Concomitant]
     Indication: PROPHYLAXIS
     Route: 048
     Dates: start: 20101210, end: 20101217
  18. BERBERON [Concomitant]
     Route: 048
     Dates: start: 20101209

REACTIONS (3)
  - THROMBOCYTOPENIA [None]
  - DELIRIUM [None]
  - CARDIAC FAILURE [None]
